FAERS Safety Report 6112368-9 (Version None)
Quarter: 2009Q1

REPORT INFORMATION
  Report Type: 
  Country: None (occurrence: None)
  Receive Date: 20090311
  Receipt Date: 20090311
  Transmission Date: 20090719
  Serious: Yes (Life-Threatening)
  Sender: FDA-Public Use
  Company Number: None

PATIENT
  Sex: Male
  Weight: 105.6881 kg

DRUGS (2)
  1. FLUOROURACIL [Suspect]
     Indication: COLON CANCER
     Dosage: 950MG BOLUS EVERY 2 WEEKS IV
     Route: 042
     Dates: start: 20081124, end: 20090107
  2. FLUOROURACIL [Suspect]
     Indication: COLON CANCER
     Dosage: 5600MG INFUSION 46 HRS Q 2 WEEKS IV
     Route: 042
     Dates: start: 20081124, end: 20090107

REACTIONS (6)
  - CARDIAC ARREST [None]
  - DIARRHOEA [None]
  - ELECTROMECHANICAL DISSOCIATION [None]
  - FAECAL VOMITING [None]
  - NO THERAPEUTIC RESPONSE [None]
  - PULMONARY EMBOLISM [None]
